FAERS Safety Report 7377657-9 (Version None)
Quarter: 2011Q1

REPORT INFORMATION
  Report Type: 
  Country: None (occurrence: None)
  Receive Date: 20110316
  Receipt Date: 20101229
  Transmission Date: 20110831
  Serious: Yes (Other)
  Sender: FDA-Public Use
  Company Number: DSA_44598_2010

PATIENT
  Sex: Male

DRUGS (1)
  1. XENAZINE [Suspect]
     Indication: HUNTINGTON'S DISEASE
     Dosage: 12.5 MG TID ORAL
     Route: 048

REACTIONS (4)
  - LETHARGY [None]
  - INCOHERENT [None]
  - LACERATION [None]
  - DISTURBANCE IN ATTENTION [None]
